FAERS Safety Report 4731855-9 (Version None)
Quarter: 2005Q3

REPORT INFORMATION
  Report Type: 
  Country: None (occurrence: None)
  Receive Date: 20050725
  Receipt Date: 20050131
  Transmission Date: 20060218
  Serious: Yes (Disabling)
  Sender: FDA-Public Use
  Company Number: WAES 0502USA00010

PATIENT
  Age: 55 Year
  Sex: Female
  Weight: 70.7611 kg

DRUGS (1)
  1. VIOXX [Suspect]
     Indication: ARTHRITIS
     Dosage: 100 MG/DAILY/PO
     Route: 048
     Dates: start: 20000101, end: 20041001

REACTIONS (6)
  - ABDOMINAL PAIN UPPER [None]
  - ASTHENIA [None]
  - GASTRITIS [None]
  - HAEMORRHOIDS [None]
  - OESOPHAGITIS [None]
  - PRESCRIBED OVERDOSE [None]
